FAERS Safety Report 7361634-8 (Version None)
Quarter: 2011Q1

REPORT INFORMATION
  Report Type: 
  Country: None (occurrence: None)
  Receive Date: 20110318
  Receipt Date: 20110309
  Transmission Date: 20110831
  Serious: Yes (Other)
  Sender: FDA-Public Use
  Company Number: DE-NOVOPROD-323540

PATIENT
  Sex: Female
  Weight: 152 kg

DRUGS (4)
  1. VICTOZA [Suspect]
     Indication: TYPE 2 DIABETES MELLITUS
     Dosage: 1.8 MG, UNK
     Route: 058
     Dates: end: 20091031
  2. METFORMIN HCL [Concomitant]
     Dosage: UNK
     Route: 048
  3. FURORESE                           /00032601/ [Concomitant]
     Dosage: UNK
     Dates: start: 20081001
  4. VICTOZA [Suspect]
     Dosage: UNK
     Route: 058
     Dates: start: 20091101, end: 20110101

REACTIONS (2)
  - TACHYCARDIA [None]
  - HYPOGLYCAEMIA [None]
